FAERS Safety Report 17932900 (Version 8)
Quarter: 2020Q3

REPORT INFORMATION
  Report Type: Spontaneous
  Country: JP (occurrence: JP)
  Receive Date: 20200623
  Receipt Date: 20200805
  Transmission Date: 20201103
  Serious: Yes (Death, Other)
  Sender: FDA-Public Use
  Company Number: JP-PFIZER INC-2020240696

PATIENT
  Sex: Female
  Weight: 40 kg

DRUGS (9)
  1. VFEND [Suspect]
     Active Substance: VORICONAZOLE
     Indication: FUNGAL INFECTION
     Dosage: 200 MG, DAILY
     Route: 048
  2. VFEND [Suspect]
     Active Substance: VORICONAZOLE
     Dosage: 400 MG, DAILY
     Route: 048
  3. VFEND [Suspect]
     Active Substance: VORICONAZOLE
     Dosage: 600 MG, DAILY
     Route: 048
  4. VFEND [Suspect]
     Active Substance: VORICONAZOLE
     Dosage: 300 MG, DAILY
     Route: 048
  5. AMPHOTERICIN B. [Concomitant]
     Active Substance: AMPHOTERICIN B
  6. PREDNISOLONE. [Concomitant]
     Active Substance: PREDNISOLONE
  7. NEORAL [Concomitant]
     Active Substance: CYCLOSPORINE
     Dosage: UNK
  8. FLUCONAZOLE. [Suspect]
     Active Substance: FLUCONAZOLE
     Dosage: UNK
  9. PROGRAF [Concomitant]
     Active Substance: TACROLIMUS
     Dosage: UNK

REACTIONS (19)
  - Renal failure [Unknown]
  - Cardiac failure [Unknown]
  - Skin disorder [Unknown]
  - Hepatic failure [Fatal]
  - Mucormycosis [Recovered/Resolved]
  - Glaucoma [Unknown]
  - Nervous system disorder [Unknown]
  - Blood glucose increased [Unknown]
  - Interstitial lung disease [Unknown]
  - Blood disorder [Unknown]
  - Mental disorder [Unknown]
  - Hepatomegaly [Unknown]
  - Pneumonitis [Unknown]
  - Lung opacity [Unknown]
  - Weight decreased [Unknown]
  - Blood pressure increased [Unknown]
  - Nasal disorder [Unknown]
  - Dyspnoea [Unknown]
  - Decreased appetite [Unknown]
